FAERS Safety Report 8902738 (Version 1)
Quarter: 2012Q4

REPORT INFORMATION
  Report Type: 
  Country: US (occurrence: US)
  Receive Date: 20121112
  Receipt Date: 20121112
  Transmission Date: 20130627
  Serious: Yes (Hospitalization)
  Sender: FDA-Public Use
  Company Number: US-BAYER-2012-116563

PATIENT
  Age: 21 Year
  Sex: Female
  Weight: 63.49 kg

DRUGS (4)
  1. YASMIN [Suspect]
  2. LEVAQUIN [Concomitant]
     Indication: MASTOIDITIS
     Dosage: 500 mg, QD
  3. OXYCODONE/APAP [Concomitant]
     Dosage: UNK; 1-2 tablets q (interpreted as every) 4 PRN (interpreted as- as needed)
  4. METHYLPREDNISOLON [Concomitant]
     Dosage: 4 mg, UNK

REACTIONS (1)
  - Intracranial venous sinus thrombosis [None]
